FAERS Safety Report 6263408-8 (Version None)
Quarter: 2009Q3

REPORT INFORMATION
  Report Type: 
  Country: None (occurrence: None)
  Receive Date: 20090710
  Receipt Date: 20090123
  Transmission Date: 20100115
  Serious: No
  Sender: FDA-Public Use
  Company Number: A0757635A

PATIENT
  Age: 77 Year
  Sex: Female

DRUGS (2)
  1. FLOVENT [Suspect]
     Indication: DRUG USE FOR UNKNOWN INDICATION
     Route: 055
     Dates: start: 20070101
  2. UNKNOWN [Concomitant]

REACTIONS (2)
  - DRUG INEFFECTIVE [None]
  - PRODUCT QUALITY ISSUE [None]
